FAERS Safety Report 11078240 (Version 1)
Quarter: 2015Q2

REPORT INFORMATION
  Report Type: Spontaneous
  Country: US (occurrence: None)
  Receive Date: 20150429
  Receipt Date: 20150429
  Transmission Date: 20150821
  Serious: No
  Sender: FDA-Public Use
  Company Number: None

PATIENT
  Age: 77 Year
  Sex: Male
  Weight: 102.7 kg

DRUGS (1)
  1. TIOTROPIUM [Suspect]
     Active Substance: TIOTROPIUM
     Route: 055
     Dates: start: 20130322, end: 20130419

REACTIONS (3)
  - Heart rate irregular [None]
  - Palpitations [None]
  - Cardiac flutter [None]

NARRATIVE: CASE EVENT DATE: 20130419
